FAERS Safety Report 5144372-1 (Version None)
Quarter: 2006Q4

REPORT INFORMATION
  Report Type: 
  Country: None (occurrence: None)
  Receive Date: 20061030
  Receipt Date: 20061016
  Transmission Date: 20070319
  Serious: Yes (Other)
  Sender: FDA-Public Use
  Company Number: 2006127172

PATIENT
  Sex: Female

DRUGS (2)
  1. ATARAX [Suspect]
     Dosage: 100 MG (1 IN 1 D), ORAL
     Route: 048
  2. AMBIEN [Suspect]
     Dosage: ORAL
     Route: 048

REACTIONS (5)
  - ABNORMAL BEHAVIOUR [None]
  - AGGRESSION [None]
  - AMNESIA [None]
  - REFUSAL OF TREATMENT BY PATIENT [None]
  - SUICIDAL IDEATION [None]
